FAERS Safety Report 5376962-5 (Version None)
Quarter: 2007Q3

REPORT INFORMATION
  Report Type: 
  Country: None (occurrence: None)
  Receive Date: 20070703
  Receipt Date: 20070626
  Transmission Date: 20080115
  Serious: Yes (Hospitalization)
  Sender: FDA-Public Use
  Company Number: US-AVENTIS-200715522GDDC

PATIENT
  Age: 50 Year
  Sex: Female
  Weight: 154.1 kg

DRUGS (10)
  1. INSULIN GLARGINE [Suspect]
     Route: 058
     Dates: start: 20011011, end: 20061016
  2. PRINIVIL [Concomitant]
     Indication: HYPERTENSION
     Route: 048
     Dates: start: 19900101, end: 20040701
  3. PAMELOR [Concomitant]
     Route: 048
     Dates: start: 19920101
  4. NEURONTIN [Concomitant]
     Indication: NEUROPATHY
     Route: 048
     Dates: start: 20011130, end: 20040701
  5. BACTROBAN [Concomitant]
     Route: 061
     Dates: start: 20020925, end: 20020928
  6. GLUCOPHAGE [Concomitant]
     Route: 048
     Dates: start: 20010517, end: 20031003
  7. ACTOS [Concomitant]
     Route: 048
     Dates: start: 20010517, end: 20031003
  8. GLUCOTROL XL [Concomitant]
     Route: 048
     Dates: start: 20010813, end: 20020819
  9. GLUCOTROL XL [Concomitant]
     Route: 048
     Dates: start: 20020819, end: 20031003
  10. KLONOPIN [Concomitant]
     Indication: NEUROPATHY
     Route: 048
     Dates: start: 19920101, end: 20011005

REACTIONS (2)
  - CONDITION AGGRAVATED [None]
  - RETINOPATHY [None]
